FAERS Safety Report 18344132 (Version 1)
Quarter: 2020Q4

REPORT INFORMATION
  Report Type: Spontaneous
  Country: CA (occurrence: CA)
  Receive Date: 20201005
  Receipt Date: 20201005
  Transmission Date: 20210114
  Serious: Yes (Disabling, Other)
  Sender: FDA-Public Use
  Company Number: CA-BRISTOL-MYERS SQUIBB COMPANY-BMS-2020-079175

PATIENT
  Age: 61 Year
  Sex: Male

DRUGS (9)
  1. ARAVA [Suspect]
     Active Substance: LEFLUNOMIDE
     Indication: RHEUMATOID ARTHRITIS
     Route: 048
  2. ARAVA [Suspect]
     Active Substance: LEFLUNOMIDE
     Route: 065
  3. METHOTREXATE. [Suspect]
     Active Substance: METHOTREXATE
     Indication: RHEUMATOID ARTHRITIS
     Dosage: 20 MILLIGRAM, QWK
     Route: 058
  4. HUMIRA [Suspect]
     Active Substance: ADALIMUMAB
     Indication: RHEUMATOID ARTHRITIS
     Route: 058
  5. LEFLUNOMIDE. [Suspect]
     Active Substance: LEFLUNOMIDE
     Indication: RHEUMATOID ARTHRITIS
     Route: 048
  6. ORENCIA [Suspect]
     Active Substance: ABATACEPT
     Indication: RHEUMATOID ARTHRITIS
     Route: 065
  7. ENBREL [Suspect]
     Active Substance: ETANERCEPT
     Indication: RHEUMATOID ARTHRITIS
     Route: 065
  8. REMICADE [Suspect]
     Active Substance: INFLIXIMAB
     Indication: RHEUMATOID ARTHRITIS
     Dosage: 300 MILLIGRAM, Q8WK
     Route: 042
  9. RITUXIMAB. [Suspect]
     Active Substance: RITUXIMAB
     Indication: RHEUMATOID ARTHRITIS
     Route: 042

REACTIONS (21)
  - Chondropathy [Unknown]
  - Tooth disorder [Unknown]
  - Sarcoidosis [Unknown]
  - Atlantoaxial instability [Unknown]
  - Malaise [Unknown]
  - Dislocation of vertebra [Unknown]
  - Joint swelling [Unknown]
  - Osteoarthritis [Unknown]
  - Disability [Unknown]
  - Intervertebral disc space narrowing [Unknown]
  - Mineral metabolism disorder [Unknown]
  - Musculoskeletal stiffness [Unknown]
  - Osteosclerosis [Unknown]
  - Rash [Unknown]
  - Weight increased [Unknown]
  - Headache [Unknown]
  - Spinal instability [Unknown]
  - Arthralgia [Unknown]
  - Drug ineffective [Unknown]
  - Hyperhidrosis [Unknown]
  - Tooth fracture [Unknown]
